FAERS Safety Report 5968395-5 (Version None)
Quarter: 2008Q4

REPORT INFORMATION
  Report Type: 
  Country: None (occurrence: None)
  Receive Date: 20081119
  Receipt Date: 20081016
  Transmission Date: 20090506
  Serious: No
  Sender: FDA-Public Use
  Company Number: WAES 0806USA03150

PATIENT
  Age: 80 Year
  Sex: Female
  Weight: 82.5547 kg

DRUGS (9)
  1. JANUVIA [Suspect]
     Indication: TYPE 2 DIABETES MELLITUS
     Dosage: 50 MG/DAILY/PO
     Route: 048
     Dates: start: 20070622, end: 20070627
  2. ACTONEL [Concomitant]
  3. CYMBALTA [Concomitant]
  4. LASIX [Concomitant]
  5. MOBIC [Concomitant]
  6. PREVACID [Concomitant]
  7. DILTIAZEM HYDROCHLORIDE [Concomitant]
  8. FOLIC ACID [Concomitant]
  9. METHOTREXATE [Concomitant]

REACTIONS (2)
  - RASH ERYTHEMATOUS [None]
  - RASH MACULAR [None]
